FAERS Safety Report 16403536 (Version 2)
Quarter: 2019Q2

REPORT INFORMATION
  Report Type: Spontaneous
  Country: GB (occurrence: GB)
  Receive Date: 20190607
  Receipt Date: 20190618
  Transmission Date: 20190711
  Serious: Yes (Other)
  Sender: FDA-Public Use
  Company Number: GB-AUROBINDO-AUR-APL-2019-031917

PATIENT

DRUGS (3)
  1. FLUOXETINE [Suspect]
     Active Substance: FLUOXETINE HYDROCHLORIDE
     Indication: DEPRESSION
  2. FLUOXETINE [Suspect]
     Active Substance: FLUOXETINE HYDROCHLORIDE
     Indication: ANXIETY
     Dosage: UNK,FLUOXETINE 20 MG CAPSULES 30
     Route: 065
     Dates: start: 20190415, end: 20190512
  3. ALCOHOL. [Interacting]
     Active Substance: ALCOHOL
     Indication: PRODUCT USED FOR UNKNOWN INDICATION
     Dosage: UNK
     Route: 065

REACTIONS (4)
  - Treatment noncompliance [Unknown]
  - Alcohol interaction [Unknown]
  - Suicidal ideation [Recovering/Resolving]
  - Loss of consciousness [Unknown]

NARRATIVE: CASE EVENT DATE: 20190512
